FAERS Safety Report 4312887-1 (Version None)
Quarter: 2004Q1

REPORT INFORMATION
  Report Type: 
  Country: None (occurrence: None)
  Receive Date: 20040304
  Receipt Date: 20040225
  Transmission Date: 20041129
  Serious: Yes (Other)
  Sender: FDA-Public Use
  Company Number: ENTC2004-0029 (0)

PATIENT
  Age: 81 Year
  Sex: Female

DRUGS (7)
  1. STALEVO 100 [Suspect]
     Indication: PARKINSON'S DISEASE
     Dosage: 100 MG/ 25 MG/ 200 MG FOUR TIMES DAILY,ORAL; 100 MG/ 25 MG/ 200 MG FOUR TIMES DAILY, ORAL
     Route: 048
     Dates: start: 20040212, end: 20040213
  2. STALEVO 100 [Suspect]
     Indication: PARKINSON'S DISEASE
     Dosage: 100 MG/ 25 MG/ 200 MG FOUR TIMES DAILY,ORAL; 100 MG/ 25 MG/ 200 MG FOUR TIMES DAILY, ORAL
     Route: 048
     Dates: start: 20040215, end: 20040216
  3. EFEXOR (UNKNOWN) [Concomitant]
  4. RITALIN TAB [Concomitant]
  5. SYNTHROID (UNKNOWN) [Concomitant]
  6. TOPROL-XL [Concomitant]
  7. INSULIN (UNKNOWN) [Concomitant]

REACTIONS (2)
  - BLOOD GLUCOSE DECREASED [None]
  - COMA [None]
